FAERS Safety Report 5570733-2 (Version None)
Quarter: 2007Q4

REPORT INFORMATION
  Report Type: 
  Country: None (occurrence: None)
  Receive Date: 20071221
  Receipt Date: 20071214
  Transmission Date: 20080405
  Serious: Yes (Other)
  Sender: FDA-Public Use
  Company Number: CA-ASTRAZENECA-2007UW25096

PATIENT
  Age: 6941 Day
  Sex: Male
  Weight: 64 kg

DRUGS (2)
  1. SEROQUEL [Suspect]
     Indication: PSYCHOTIC DISORDER
     Dosage: CONTINUING (DECREASED DOSE)
     Route: 048
     Dates: start: 20061212
  2. CONCERTA [Concomitant]
     Indication: ATTENTION DEFICIT/HYPERACTIVITY DISORDER
     Dosage: 72 MG QAM + 54 MG QNOON
     Route: 048
     Dates: start: 20060801

REACTIONS (1)
  - NEUTROPHIL COUNT DECREASED [None]
